FAERS Safety Report 6841635-6 (Version None)
Quarter: 2010Q3

REPORT INFORMATION
  Report Type: 
  Country: None (occurrence: None)
  Receive Date: 20100714
  Receipt Date: 20100205
  Transmission Date: 20110219
  Serious: No
  Sender: FDA-Public Use
  Company Number: US-PFIZER INC-2007058436

PATIENT
  Sex: Female
  Weight: 87.1 kg

DRUGS (7)
  1. CHANTIX [Suspect]
     Indication: SMOKING CESSATION THERAPY
     Dosage: 0.5 MG, 2X/DAY
     Dates: start: 20070618
  2. CHANTIX [Suspect]
     Dosage: 1 MG, 2X/DAY
  3. VALPROATE SODIUM [Suspect]
     Indication: MENTAL DISORDER
  4. SEROQUEL [Suspect]
     Indication: MENTAL DISORDER
  5. BUSPAR [Suspect]
     Indication: MENTAL DISORDER
  6. ADVAIR DISKUS 100/50 [Concomitant]
  7. ALBUTEROL [Concomitant]

REACTIONS (3)
  - DRUG INEFFECTIVE [None]
  - HYPERHIDROSIS [None]
  - TREMOR [None]
